FAERS Safety Report 6120225-7 (Version None)
Quarter: 2009Q1

REPORT INFORMATION
  Report Type: 
  Country: None (occurrence: None)
  Receive Date: 20090312
  Receipt Date: 20090310
  Transmission Date: 20090719
  Serious: Yes (Death)
  Sender: FDA-Public Use
  Company Number: 187306USA

PATIENT
  Sex: Female

DRUGS (1)
  1. DIAZEPAM [Suspect]

REACTIONS (1)
  - COMPLETED SUICIDE [None]
